FAERS Safety Report 16839163 (Version 1)
Quarter: 2019Q4

REPORT INFORMATION
  Report Type: Spontaneous
  Country: US (occurrence: US)
  Receive Date: 20190920
  Receipt Date: 20190920
  Transmission Date: 20200122
  Serious: Yes (Disabling)
  Sender: FDA-Public Use
  Company Number: None

PATIENT
  Age: 47 Year
  Sex: Male
  Weight: 81 kg

DRUGS (6)
  1. KRILL OIL [Concomitant]
     Active Substance: DIETARY SUPPLEMENT\KRILL OIL
  2. VENLAFAXINE [Suspect]
     Active Substance: VENLAFAXINE HYDROCHLORIDE
     Indication: POST-TRAUMATIC STRESS DISORDER
     Dosage: ?          QUANTITY:1 CAPSULE(S);?
     Route: 048
     Dates: start: 20180201, end: 20181201
  3. WELLBUTRIN 100 MGS [Concomitant]
  4. ASHWAGANDA [Concomitant]
  5. DAILY VITAMIN [Concomitant]
     Active Substance: VITAMINS
  6. COQ 10 [Concomitant]
     Active Substance: UBIDECARENONE

REACTIONS (5)
  - Withdrawal syndrome [None]
  - Suicidal ideation [None]
  - Anhedonia [None]
  - Personal relationship issue [None]
  - Brain injury [None]

NARRATIVE: CASE EVENT DATE: 20181002
